FAERS Safety Report 25116124 (Version 1)
Quarter: 2025Q1

REPORT INFORMATION
  Report Type: Spontaneous
  Country: EG (occurrence: EG)
  Receive Date: 20250325
  Receipt Date: 20250325
  Transmission Date: 20250408
  Serious: Yes (Death, Hospitalization)
  Sender: ELI LILLY AND COMPANY
  Company Number: EG-ELI_LILLY_AND_COMPANY-EG202412013584

PATIENT
  Age: 56 Year
  Sex: Female

DRUGS (1)
  1. VERZENIO [Suspect]
     Active Substance: ABEMACICLIB
     Indication: Breast cancer metastatic
     Dosage: 200 MG, DAILY
     Route: 048
     Dates: start: 2023

REACTIONS (5)
  - Malignant neoplasm progression [Fatal]
  - Jaundice [Not Recovered/Not Resolved]
  - Oedema peripheral [Not Recovered/Not Resolved]
  - Localised oedema [Not Recovered/Not Resolved]
  - Intercepted product prescribing error [Not Recovered/Not Resolved]

NARRATIVE: CASE EVENT DATE: 20241101
